FAERS Safety Report 5008541-3 (Version None)
Quarter: 2006Q2

REPORT INFORMATION
  Report Type: 
  Country: None (occurrence: None)
  Receive Date: 20060518
  Receipt Date: 20060509
  Transmission Date: 20061013
  Serious: Yes (Life-Threatening)
  Sender: FDA-Public Use
  Company Number: 200610459BVD

PATIENT
  Age: 59 Year
  Sex: Male
  Weight: 110 kg

DRUGS (9)
  1. AVELOX [Suspect]
     Indication: BRONCHITIS
     Dosage: 400 MG, TOTAL DAILY, INTRAVENOUS
     Route: 042
     Dates: start: 20060331, end: 20060401
  2. AMARYL [Concomitant]
  3. PANTOZOL [Concomitant]
  4. ARELIX [Concomitant]
  5. DELIX [Concomitant]
  6. NOVALGIN [Concomitant]
  7. FURORESE [Concomitant]
  8. RAMIPRIL [Concomitant]
  9. LANTUS [Concomitant]

REACTIONS (17)
  - AORTIC VALVE INCOMPETENCE [None]
  - ASCITES [None]
  - BUNDLE BRANCH BLOCK RIGHT [None]
  - CARDIOMEGALY [None]
  - DIABETIC NEUROPATHY [None]
  - ENDOSCOPY UPPER GASTROINTESTINAL TRACT ABNORMAL [None]
  - HEPATIC FAILURE [None]
  - HYPOGLYCAEMIA [None]
  - INSULIN-REQUIRING TYPE II DIABETES MELLITUS [None]
  - LEG AMPUTATION [None]
  - MITRAL VALVE INCOMPETENCE [None]
  - PLEURAL EFFUSION [None]
  - PULSE ABSENT [None]
  - SUPRAVENTRICULAR TACHYCARDIA [None]
  - TRICUSPID VALVE INCOMPETENCE [None]
  - VENTRICULAR DYSFUNCTION [None]
  - WOUND INFECTION STAPHYLOCOCCAL [None]
